FAERS Safety Report 6025237-X (Version None)
Quarter: 2008Q4

REPORT INFORMATION
  Report Type: 
  Country: None (occurrence: None)
  Receive Date: 20081229
  Receipt Date: 20081229
  Transmission Date: 20090506
  Serious: Yes (Hospitalization)
  Sender: FDA-Public Use
  Company Number: None

PATIENT
  Sex: Female
  Weight: 96.3 kg

DRUGS (1)
  1. PREDNISONE [Suspect]
     Indication: BRONCHITIS
     Dosage: 20 MG BID PO
     Route: 048
     Dates: start: 20081110, end: 20081111

REACTIONS (4)
  - HYPERGLYCAEMIA [None]
  - LACTIC ACIDOSIS [None]
  - SHIFT TO THE LEFT [None]
  - WHITE BLOOD CELL COUNT INCREASED [None]
